FAERS Safety Report 4570300-3 (Version None)
Quarter: 2005Q1

REPORT INFORMATION
  Report Type: 
  Country: None (occurrence: None)
  Receive Date: 20050127
  Receipt Date: 20050127
  Transmission Date: 20050727
  Serious: Yes (Hospitalization)
  Sender: FDA-Public Use
  Company Number: None

PATIENT
  Age: 61 Year
  Sex: Male
  Weight: 88.5 kg

DRUGS (20)
  1. WARFARIN SODIUM [Suspect]
  2. TRETINOIN [Concomitant]
  3. ZINC OXIDE OINTMENT [Concomitant]
  4. TERAZOSIN CAP [Concomitant]
  5. RANITIDINE TAB [Concomitant]
  6. PSYLLIUM POWDER [Concomitant]
  7. GEMFIBROZIL TAB [Concomitant]
  8. ACETAMINOPHEN TAB [Concomitant]
  9. TRIAMCINOLONE [Concomitant]
  10. MULTIVITAMINS TAB [Concomitant]
  11. FELODIPINE [Concomitant]
  12. SOTALOL TAB [Concomitant]
  13. OMEPRAZOLE CAP, SA [Concomitant]
  14. IPRATROPIUM INHALANT [Concomitant]
  15. HYDROCORTISONE RECTAL FOAM AEROSOL, RTL [Concomitant]
  16. HYDROCHLOROTHIAZIDE TAB [Concomitant]
  17. GABAPENTIN CAP [Concomitant]
  18. DOXYCYCLINE CAP [Concomitant]
  19. DOCUSATE CAP [Concomitant]
  20. GATIFLOXACIN [Concomitant]

REACTIONS (1)
  - INTERNATIONAL NORMALISED RATIO INCREASED [None]
